FAERS Safety Report 5231393-3 (Version None)
Quarter: 2007Q1

REPORT INFORMATION
  Report Type: 
  Country: None (occurrence: None)
  Receive Date: 20070205
  Receipt Date: 20070205
  Transmission Date: 20070707
  Serious: No
  Sender: FDA-Public Use
  Company Number: None

PATIENT
  Age: 71 Year
  Sex: Male

DRUGS (9)
  1. AUGMENTIN XR [Suspect]
     Dates: start: 20050720, end: 20050729
  2. PRILOSEC [Concomitant]
  3. ALLEGRA-D 12 HOUR [Concomitant]
  4. MULTI-VITAMIN [Concomitant]
  5. AZITHROMYCIN [Concomitant]
  6. ADVAIR DISKUS 100/50 [Concomitant]
  7. ALLERGY INJECTIONS [Concomitant]
  8. LIPITOR [Concomitant]
  9. LEVAQUIN [Concomitant]

REACTIONS (11)
  - ASTHENIA [None]
  - COUGH [None]
  - DIZZINESS [None]
  - FATIGUE [None]
  - HEPATOTOXICITY [None]
  - HYPOGLYCAEMIA [None]
  - INFECTION [None]
  - LUNG INFILTRATION [None]
  - RASH [None]
  - SOMNOLENCE [None]
  - WEIGHT DECREASED [None]
